FAERS Safety Report 18663717 (Version 1)
Quarter: 2020Q4

REPORT INFORMATION
  Report Type: Spontaneous
  Country: JP (occurrence: JP)
  Receive Date: 20201225
  Receipt Date: 20201225
  Transmission Date: 20210114
  Serious: Yes (Other)
  Sender: FDA-Public Use
  Company Number: JP-AMGEN-JPNSP2020210120

PATIENT

DRUGS (1)
  1. PRALIA [Suspect]
     Active Substance: DENOSUMAB
     Indication: HYPERCALCAEMIA
     Dosage: UNK, 2020/12/16
     Route: 065

REACTIONS (2)
  - Off label use [Unknown]
  - Plasma cell myeloma [Not Recovered/Not Resolved]
